FAERS Safety Report 23884649 (Version 1)
Quarter: 2024Q2

REPORT INFORMATION
  Report Type: Spontaneous
  Country: ES (occurrence: ES)
  Receive Date: 20240522
  Receipt Date: 20240522
  Transmission Date: 20240716
  Serious: Yes (Hospitalization)
  Sender: FDA-Public Use
  Company Number: ES-ROCHE-3552555

PATIENT
  Age: 77 Year
  Sex: Male
  Weight: 60 kg

DRUGS (19)
  1. CARBOPLATIN [Suspect]
     Active Substance: CARBOPLATIN
     Indication: Lung cancer metastatic
     Dosage: START DATE OF MOST RECENT DOSE OF STUDY DRUG 830 MG PRIOR TO  AE AND 350 MG PRIOR TO SAE 21-SEP-2023
     Route: 042
     Dates: start: 20230720
  2. PEMETREXED [Suspect]
     Active Substance: PEMETREXED
     Indication: Lung cancer metastatic
     Dosage: START DATE OF MOST RECENT DOSE 810 MG OF STUDY DRUG PRIOR TO SAE 18-APR-2024
     Route: 042
     Dates: start: 20230720
  3. ASPIRIN [Concomitant]
     Active Substance: ASPIRIN
     Dosage: 100 CAPSULE
     Dates: start: 20150611
  4. ALLOPURINOL [Concomitant]
     Active Substance: ALLOPURINOL
     Indication: Gout
     Dosage: 300 CAPSULE
     Dates: start: 20220711
  5. RILAST [BUDESONIDE;FORMOTEROL FUMARATE] [Concomitant]
     Dosage: 320 FORMULATION: INHALATION
     Dates: start: 20150712
  6. METOCLOPRAMIDE [Concomitant]
     Active Substance: METOCLOPRAMIDE
     Indication: Nausea
     Dosage: 16 MG, EVERY 3 WEEKS
     Dates: start: 20240216
  7. METOCLOPRAMIDE [Concomitant]
     Active Substance: METOCLOPRAMIDE
     Indication: Vomiting
  8. HYDROCHLOROTHIAZIDE [Concomitant]
     Active Substance: HYDROCHLOROTHIAZIDE
     Dosage: 25 CAPSULE
     Dates: start: 20170611
  9. ONDANSETRON [Concomitant]
     Active Substance: ONDANSETRON
     Indication: Vomiting
     Dosage: 8 MG, EVERY 3 WEEKS
     Dates: start: 20231011
  10. ONDANSETRON [Concomitant]
     Active Substance: ONDANSETRON
     Indication: Nausea
  11. TIRAGOLUMAB [Concomitant]
     Active Substance: TIRAGOLUMAB
     Indication: Lung cancer metastatic
     Dosage: START DATE OF MOST RECENT DOSE OF STUDY DRUG PRIOR TO AE/SAE 18APR2024
     Dates: start: 20230720
  12. ATEZOLIZUMAB [Concomitant]
     Active Substance: ATEZOLIZUMAB
     Indication: Lung cancer metastatic
     Dosage: START DATE OF MOST RECENT DOSE OF STUDY DRUG PRIOR TO SAE 18APR2024
     Dates: start: 20230720
  13. SPIRIVA [Concomitant]
     Active Substance: TIOTROPIUM BROMIDE MONOHYDRATE
     Dates: start: 20150711
  14. FUROSEMIDE [Concomitant]
     Active Substance: FUROSEMIDE
     Indication: Oedema
     Dosage: 20 MG, 1X/DAY
     Dates: start: 20240418
  15. ROFLUMILAST [Concomitant]
     Active Substance: ROFLUMILAST
     Dosage: 500 CAPSULE
     Dates: start: 20150712
  16. ALBUTEROL [Concomitant]
     Active Substance: ALBUTEROL
     Dosage: 100 MG, 1X/DAY
     Dates: start: 20150712
  17. PEMBROLIZUMAB [Concomitant]
     Active Substance: PEMBROLIZUMAB
     Indication: Lung cancer metastatic
     Dosage: START DATE OF MOST RECENT DOSE OF STUDY DRUG PRIOR TO SAE 18APR2024
     Dates: start: 20230720
  18. CEFDITOREN [Concomitant]
     Active Substance: CEFDITOREN
     Indication: Respiratory tract infection
     Dosage: FREQ:0.5 D;
     Dates: start: 20240422, end: 20240427
  19. OMEPRAZOLE [Concomitant]
     Active Substance: DONEPEZIL HYDROCHLORIDE\OMEPRAZOLE\OMEPRAZOLE MAGNESIUM
     Indication: Dyspepsia
     Dosage: 20 CAPSULE
     Dates: start: 20150611

REACTIONS (1)
  - Dyspnoea [Recovered/Resolved]

NARRATIVE: CASE EVENT DATE: 20240422
